FAERS Safety Report 12956982 (Version 1)
Quarter: 2016Q4

REPORT INFORMATION
  Report Type: Report from Study
  Country: US (occurrence: US)
  Receive Date: 20161118
  Receipt Date: 20161118
  Transmission Date: 20170207
  Serious: Yes (Hospitalization, Other)
  Sender: FDA-Public Use
  Company Number: US-SA-2016SA209340

PATIENT
  Age: 55 Year
  Sex: Female

DRUGS (1)
  1. FABRAZYME [Suspect]
     Active Substance: AGALSIDASE BETA
     Indication: FABRY^S DISEASE
     Dosage: DOSE : 1.00 UNITS NOT PROVIDED?FREQUENCY : Q2
     Route: 041
     Dates: start: 20150928

REACTIONS (15)
  - Burning sensation [Unknown]
  - Temperature intolerance [Unknown]
  - Angiokeratoma [Unknown]
  - Fatigue [Unknown]
  - Proteinuria [Unknown]
  - Hypohidrosis [Unknown]
  - Gastrointestinal disorder [Unknown]
  - Vomiting [Unknown]
  - Neoplasm malignant [Unknown]
  - Atrial fibrillation [Unknown]
  - Pruritus [Unknown]
  - Hair disorder [Unknown]
  - Depression [Unknown]
  - Cystitis interstitial [Unknown]
  - Appendicitis [Unknown]
